FAERS Safety Report 9289169 (Version 2)
Quarter: 2013Q2

REPORT INFORMATION
  Report Type: Spontaneous
  Country: FR (occurrence: FR)
  Receive Date: 20130514
  Receipt Date: 20130514
  Transmission Date: 20140414
  Serious: Yes (Hospitalization, Other)
  Sender: FDA-Public Use
  Company Number: FR-ACTELION-A-CH2009-25764

PATIENT
  Age: 0 Day
  Sex: Female
  Weight: 1.95 kg

DRUGS (5)
  1. TRACLEER [Suspect]
     Indication: EXPOSURE DURING PREGNANCY
     Dosage: 125 MG, BID
     Route: 064
  2. TRACLEER [Suspect]
     Route: 064
  3. MOPRAL [Suspect]
     Dosage: UNK
     Route: 064
     Dates: start: 20060613, end: 20061015
  4. ASPEGIC BABY [Suspect]
     Dosage: UNK
     Route: 064
     Dates: start: 20060613, end: 20061015
  5. MICROVAL [Suspect]
     Indication: EXPOSURE DURING PREGNANCY
     Dosage: UNK
     Route: 064
     Dates: start: 20060613

REACTIONS (8)
  - Exposure during pregnancy [Recovered/Resolved]
  - Premature baby [Recovered/Resolved]
  - Foetal growth restriction [Recovered/Resolved]
  - Neonatal respiratory distress syndrome [Recovered/Resolved]
  - Foetal hypokinesia [Recovered/Resolved]
  - Foetal arrhythmia [Recovered/Resolved]
  - Hypoglycaemia neonatal [Recovered/Resolved]
  - Caesarean section [None]
